FAERS Safety Report 16856414 (Version 3)
Quarter: 2019Q4

REPORT INFORMATION
  Report Type: Spontaneous
  Country: SG (occurrence: SG)
  Receive Date: 20190926
  Receipt Date: 20191009
  Transmission Date: 20200122
  Serious: Yes (Other)
  Sender: FDA-Public Use
  Company Number: SG-PFIZER INC-2019397460

PATIENT
  Age: 46 Year
  Sex: Female
  Weight: 51 kg

DRUGS (5)
  1. METHOTREXATE. [Suspect]
     Active Substance: METHOTREXATE
     Indication: CENTRAL NERVOUS SYSTEM LYMPHOMA
     Dosage: UNK, CYCLIC ((INFUSION AT 3.5 G/M^2 GIVEN OVER 3 H) (HIGH DOSE)))
  2. DEXAMETHASONE. [Concomitant]
     Active Substance: DEXAMETHASONE
     Indication: CENTRAL NERVOUS SYSTEM LYMPHOMA
     Dosage: UNK
  3. FOLINIC ACID [Concomitant]
     Active Substance: LEUCOVORIN
     Dosage: 30 MG, 4X/DAY (30 MG 6?HOURLY WAS GIVEN 24 H)
     Route: 042
  4. METHOTREXATE. [Suspect]
     Active Substance: METHOTREXATE
     Dosage: UNK, CYCLIC (LOWER DOSE OF 2.5 G/M^2 AT WEEK 3, COMPLETING A TOTAL OF 5 BIWEEKLY DOSES)
  5. RITUXIMAB. [Concomitant]
     Active Substance: RITUXIMAB
     Indication: CENTRAL NERVOUS SYSTEM LYMPHOMA
     Dosage: UNK
     Route: 042

REACTIONS (1)
  - Choreoathetosis [Recovered/Resolved]
